FAERS Safety Report 5507494-9 (Version None)
Quarter: 2007Q4

REPORT INFORMATION
  Report Type: 
  Country: None (occurrence: None)
  Receive Date: 20071106
  Receipt Date: 20071029
  Transmission Date: 20080405
  Serious: Yes (Death)
  Sender: FDA-Public Use
  Company Number: GB-AVENTIS-200720084GDDC

PATIENT
  Age: 81 Year
  Sex: Female

DRUGS (1)
  1. GLYBURIDE [Suspect]
     Route: 048

REACTIONS (3)
  - DIARRHOEA [None]
  - MEDICATION ERROR [None]
  - PNEUMONIA [None]
